FAERS Safety Report 9384199 (Version 1)
Quarter: 2013Q3

REPORT INFORMATION
  Report Type: Spontaneous
  Country: US (occurrence: None)
  Receive Date: 20130702
  Receipt Date: 20130702
  Transmission Date: 20140515
  Serious: Yes (Disabling)
  Sender: FDA-Public Use
  Company Number: None

PATIENT
  Age: 55 Year
  Sex: Male
  Weight: 85.28 kg

DRUGS (1)
  1. LEVAQUIN [Suspect]
     Indication: SURGERY
     Dosage: DO NOT RECALL
     Dates: start: 20130517, end: 20130524

REACTIONS (3)
  - Joint swelling [None]
  - Tendon pain [None]
  - Tendonitis [None]
